FAERS Safety Report 15281293 (Version 1)
Quarter: 2018Q3

REPORT INFORMATION
  Report Type: Spontaneous
  Country: US (occurrence: US)
  Receive Date: 20180815
  Receipt Date: 20180815
  Transmission Date: 20181010
  Serious: No
  Sender: FDA-Public Use
  Company Number: US-TAKEDA-2018TUS024339

PATIENT
  Age: 75 Year
  Sex: Female
  Weight: 126.98 kg

DRUGS (1)
  1. DEXILANT [Suspect]
     Active Substance: DEXLANSOPRAZOLE
     Indication: ABDOMINAL DISCOMFORT
     Dosage: 60 MG, QD
     Route: 048
     Dates: start: 20180724

REACTIONS (9)
  - Weight decreased [Unknown]
  - Flatulence [Unknown]
  - Nausea [Unknown]
  - Off label use [Unknown]
  - Feeding disorder [Unknown]
  - Diarrhoea [Unknown]
  - Abdominal pain upper [Unknown]
  - Arthropathy [Unknown]
  - Asthenia [Unknown]
